FAERS Safety Report 18590844 (Version 5)
Quarter: 2021Q1

REPORT INFORMATION
  Report Type: Report from Study
  Country: US (occurrence: US)
  Receive Date: 20201208
  Receipt Date: 20210202
  Transmission Date: 20210419
  Serious: Yes (Other)
  Sender: FDA-Public Use
  Company Number: NVSC2020US325853

PATIENT
  Age: 69 Year
  Sex: Female
  Weight: 64.41 kg

DRUGS (7)
  1. PROMACTA [Suspect]
     Active Substance: ELTROMBOPAG OLAMINE
     Dosage: 25 MG, QD
     Route: 048
     Dates: start: 20201202
  2. TYLENOL [Concomitant]
     Active Substance: ACETAMINOPHEN
     Indication: PRODUCT USED FOR UNKNOWN INDICATION
     Dosage: 325 MG
     Route: 065
  3. PROMACTA [Suspect]
     Active Substance: ELTROMBOPAG OLAMINE
     Dosage: 75 MG, QD
     Route: 048
  4. AVASTIN [Concomitant]
     Active Substance: BEVACIZUMAB
     Indication: PRODUCT USED FOR UNKNOWN INDICATION
     Dosage: UNK
     Route: 065
  5. PROLIA [Concomitant]
     Active Substance: DENOSUMAB
     Indication: PRODUCT USED FOR UNKNOWN INDICATION
     Dosage: UNK
     Route: 065
  6. PROMACTA [Suspect]
     Active Substance: ELTROMBOPAG OLAMINE
     Indication: THROMBOCYTOPENIA
     Dosage: 25 MG, QD
     Route: 048
  7. CALTRATE [Concomitant]
     Active Substance: CALCIUM CARBONATE
     Indication: PRODUCT USED FOR UNKNOWN INDICATION
     Dosage: UNK
     Route: 065

REACTIONS (9)
  - Abdominal pain [Unknown]
  - Vision blurred [Recovered/Resolved]
  - Pyrexia [Unknown]
  - Pain [Recovered/Resolved]
  - Fatigue [Recovered/Resolved]
  - Syncope [Recovered/Resolved]
  - Dizziness [Recovered/Resolved]
  - Insomnia [Unknown]
  - Malaise [Recovered/Resolved]

NARRATIVE: CASE EVENT DATE: 20201214
